FAERS Safety Report 24040037 (Version 1)
Quarter: 2024Q3

REPORT INFORMATION
  Report Type: Spontaneous
  Country: US (occurrence: None)
  Receive Date: 20240701
  Receipt Date: 20240701
  Transmission Date: 20241017
  Serious: No
  Sender: Public
  Company Number: None

PATIENT
  Sex: Female

DRUGS (2)
  1. HYRIMOZ [Suspect]
     Active Substance: ADALIMUMAB-ADAZ
     Indication: Rheumatoid arthritis
     Dosage: 40MG EVERY OTHER WEEK SUBQ
     Route: 058
     Dates: start: 202406
  2. ORENCIA [Concomitant]

REACTIONS (2)
  - Pain [None]
  - Gait disturbance [None]
